FAERS Safety Report 14397863 (Version 20)
Quarter: 2018Q4

REPORT INFORMATION
  Report Type: Report from Study
  Country: US (occurrence: US)
  Receive Date: 20180116
  Receipt Date: 20181031
  Transmission Date: 20190204
  Serious: Yes (Hospitalization)
  Sender: FDA-Public Use
  Company Number: US-ACTELION-A-NJ2017-155321

PATIENT
  Age: 65 Year
  Sex: Female
  Weight: 61.22 kg

DRUGS (9)
  1. SILDENAFIL CITRATE. [Concomitant]
     Active Substance: SILDENAFIL CITRATE
  2. ELIQUIS [Concomitant]
     Active Substance: APIXABAN
  3. OXYGEN. [Concomitant]
     Active Substance: OXYGEN
     Dosage: 3 L/MIN, UNK
  4. OXYGEN. [Concomitant]
     Active Substance: OXYGEN
     Dosage: 6-7 L/MIN, UNK
  5. VELETRI [Suspect]
     Active Substance: EPOPROSTENOL
     Indication: PULMONARY ARTERIAL HYPERTENSION
     Dosage: 18 NG/KG, PER MIN
     Route: 042
  6. OPSUMIT [Suspect]
     Active Substance: MACITENTAN
     Indication: PULMONARY ARTERIAL HYPERTENSION
     Dosage: 10 MG, QD
     Route: 048
     Dates: start: 20161229
  7. VELETRI [Suspect]
     Active Substance: EPOPROSTENOL
     Dosage: 25 NG/KG, PER MIN
     Route: 042
  8. VELETRI [Suspect]
     Active Substance: EPOPROSTENOL
     Dosage: 18 NG/KG, PER MIN
     Route: 042
  9. VELETRI [Suspect]
     Active Substance: EPOPROSTENOL
     Dosage: 26 NG/KG, PER MIN
     Route: 042

REACTIONS (41)
  - Fluid retention [Unknown]
  - Right ventricular failure [Recovered/Resolved]
  - Fatigue [Recovered/Resolved]
  - Acute pulmonary oedema [Recovered/Resolved]
  - Pneumonia [Unknown]
  - Rash [Unknown]
  - Arthritis [Unknown]
  - Arthralgia [Unknown]
  - Complication associated with device [Unknown]
  - Acute kidney injury [Unknown]
  - Device damage [Unknown]
  - Swelling [Unknown]
  - Waist circumference increased [Recovered/Resolved]
  - Nasopharyngitis [Unknown]
  - Bronchitis [Unknown]
  - Thrombosis [Unknown]
  - Oedema [Recovered/Resolved]
  - Upper respiratory tract infection [Recovered/Resolved]
  - Orthostatic hypotension [Unknown]
  - Pain in extremity [Unknown]
  - Fluid overload [Unknown]
  - Abdominal discomfort [Unknown]
  - Urinary tract infection [Unknown]
  - Sinus disorder [Unknown]
  - Condition aggravated [Unknown]
  - Dyspnoea [Unknown]
  - Weight decreased [Unknown]
  - Nausea [Unknown]
  - Pain in jaw [Unknown]
  - Clostridium difficile infection [Unknown]
  - Tremor [Unknown]
  - Sinusitis [Unknown]
  - Pulmonary arterial hypertension [Unknown]
  - Weight increased [Unknown]
  - Orthopnoea [Recovered/Resolved]
  - Diarrhoea [Unknown]
  - Anxiety [Unknown]
  - Back pain [Unknown]
  - Malaise [Unknown]
  - Respiratory disorder [Recovered/Resolved]
  - Agitation [Unknown]

NARRATIVE: CASE EVENT DATE: 2017
